FAERS Safety Report 7509136-X (Version None)
Quarter: 2011Q2

REPORT INFORMATION
  Report Type: 
  Country: None (occurrence: None)
  Receive Date: 20110527
  Receipt Date: 20110517
  Transmission Date: 20111010
  Serious: Yes (Hospitalization, Other)
  Sender: FDA-Public Use
  Company Number: JP-JNJFOC-20110205807

PATIENT
  Sex: Female

DRUGS (8)
  1. TPN ELECTROLYTES IN PLASTIC CONTAINER [Concomitant]
     Indication: PNEUMONIA
     Route: 041
     Dates: start: 20101008, end: 20101018
  2. METHOTREXATE [Suspect]
     Indication: RHEUMATOID ARTHRITIS
     Route: 048
     Dates: start: 20101008
  3. MEDROL [Concomitant]
     Indication: RHEUMATOID ARTHRITIS
     Route: 048
     Dates: start: 20101008
  4. ASPARA K [Concomitant]
     Indication: PNEUMONIA
     Route: 041
     Dates: start: 20101008, end: 20101012
  5. DORIPENEM MONOHYDRATE [Suspect]
     Indication: PNEUMONIA
     Dosage: WAS GIVEN FOR 10 DAYS
     Route: 041
     Dates: start: 20101008, end: 20101018
  6. BISOLVON [Concomitant]
     Indication: PNEUMONIA
     Route: 042
     Dates: start: 20101009, end: 20101020
  7. DORIPENEM MONOHYDRATE [Suspect]
     Indication: HEPATIC NEOPLASM
     Dosage: WAS GIVEN FOR 10 DAYS
     Route: 041
     Dates: start: 20101008, end: 20101018
  8. VEEN-D [Concomitant]
     Indication: PNEUMONIA
     Route: 041
     Dates: start: 20101008, end: 20101020

REACTIONS (2)
  - OFF LABEL USE [None]
  - INTERSTITIAL LUNG DISEASE [None]
